FAERS Safety Report 5738489-8 (Version None)
Quarter: 2008Q2

REPORT INFORMATION
  Report Type: 
  Country: None (occurrence: None)
  Receive Date: 20080513
  Receipt Date: 20080430
  Transmission Date: 20081010
  Serious: Yes (Hospitalization, Other)
  Sender: FDA-Public Use
  Company Number: 2008-01509

PATIENT
  Age: 62 Year
  Sex: Male
  Weight: 102.9 kg

DRUGS (6)
  1. VELCADE [Suspect]
     Indication: MANTLE CELL LYMPHOMA
     Dosage: 2.9 MG, INTRAVENOUS
     Route: 042
     Dates: start: 20080416, end: 20080419
  2. CYCLOPHOSPHAMIDE [Suspect]
     Indication: MANTLE CELL LYMPHOMA
     Dosage: 660 MG, INTRAVENOUS
     Route: 042
     Dates: start: 20080416, end: 20080418
  3. RITUXAN [Suspect]
     Indication: MANTLE CELL LYMPHOMA
     Dosage: 825 MG, INTRAVENOUS
     Route: 042
     Dates: start: 20080416, end: 20080416
  4. DOXORUBICIN HCL [Suspect]
     Indication: MANTLE CELL LYMPHOMA
     Dosage: 55 MG, INTRAVENOUS
     Route: 042
     Dates: start: 20080416, end: 20080417
  5. DEXAMETHASONE TAB [Suspect]
     Indication: MANTLE CELL LYMPHOMA
     Dosage: 40 MG, ORAL
     Route: 048
     Dates: start: 20080416, end: 20080419
  6. VINCRISTINE [Suspect]
     Indication: MANTLE CELL LYMPHOMA
     Dosage: 1 MG, INTRAVENOUS
     Route: 042
     Dates: start: 20080418, end: 20080418

REACTIONS (1)
  - OESOPHAGITIS [None]
